FAERS Safety Report 8180311-7 (Version None)
Quarter: 2012Q1

REPORT INFORMATION
  Report Type: 
  Country: None (occurrence: None)
  Receive Date: 20120302
  Receipt Date: 20120222
  Transmission Date: 20120608
  Serious: Yes (Hospitalization)
  Sender: FDA-Public Use
  Company Number: US-AMGEN-USASP2012011833

PATIENT
  Age: 45 Year
  Sex: Female

DRUGS (1)
  1. ENBREL [Suspect]
     Indication: RHEUMATOID ARTHRITIS
     Dosage: 25 MG, ONCE EVERY 5-6 DAYS
     Route: 058
     Dates: start: 20020101

REACTIONS (3)
  - ALVEOLITIS ALLERGIC [None]
  - NASOPHARYNGITIS [None]
  - BRONCHITIS [None]
